FAERS Safety Report 4407872-5 (Version None)
Quarter: 2004Q3

REPORT INFORMATION
  Report Type: 
  Country: None (occurrence: None)
  Receive Date: 20040726
  Receipt Date: 20020421
  Transmission Date: 20050211
  Serious: Yes (Hospitalization)
  Sender: FDA-Public Use
  Company Number: PHBS2002CH05053

PATIENT
  Age: 65 Year
  Sex: Female
  Weight: 54 kg

DRUGS (7)
  1. ZELMAC [Suspect]
     Indication: IRRITABLE BOWEL SYNDROME
     Dosage: 12 MG/DAY
     Route: 048
     Dates: start: 20020208, end: 20020226
  2. ZELMAC [Suspect]
     Route: 048
     Dates: start: 20020311, end: 20020315
  3. ZELMAC [Suspect]
     Route: 048
     Dates: start: 20020320, end: 20020410
  4. METAMUCIL-2 [Concomitant]
  5. DUPHALAC [Concomitant]
  6. LIBRAX [Concomitant]
  7. PROPULSID [Concomitant]

REACTIONS (9)
  - ABDOMINAL PAIN [None]
  - DIARRHOEA [None]
  - DIVERTICULITIS [None]
  - DOLICHOCOLON ACQUIRED [None]
  - HAEMATOCHEZIA [None]
  - PERITONITIS [None]
  - RASH [None]
  - RASH PRURITIC [None]
  - WHITE BLOOD CELL COUNT INCREASED [None]
